FAERS Safety Report 13840181 (Version 1)
Quarter: 2017Q3

REPORT INFORMATION
  Report Type: Spontaneous
  Country: JP (occurrence: JP)
  Receive Date: 20170807
  Receipt Date: 20170807
  Transmission Date: 20171127
  Serious: Yes (Hospitalization, Other)
  Sender: FDA-Public Use
  Company Number: JP-GLAXOSMITHKLINE-JP2017JPN095718

PATIENT
  Age: 86 Year
  Sex: Female
  Weight: 43 kg

DRUGS (8)
  1. LAMICTAL [Suspect]
     Active Substance: LAMOTRIGINE
     Dosage: 50 MG, QD
     Route: 048
     Dates: start: 20170412, end: 20170423
  2. BAYASPIRIN [Concomitant]
     Active Substance: ASPIRIN
     Dosage: UNK
  3. EBRANTIL [Suspect]
     Active Substance: URAPIDIL
     Indication: CYSTITIS
     Dosage: 30 MG, 1D
     Route: 048
     Dates: start: 20170415, end: 20170426
  4. MAGMITT [Concomitant]
     Active Substance: MAGNESIUM OXIDE
     Dosage: UNK
  5. AMITIZA [Concomitant]
     Active Substance: LUBIPROSTONE
     Dosage: UNK
  6. ALESION [Concomitant]
     Active Substance: EPINASTINE HYDROCHLORIDE
     Dosage: UNK
  7. LANSOPRAZOLE. [Concomitant]
     Active Substance: LANSOPRAZOLE
     Dosage: UNK
  8. LAMICTAL [Suspect]
     Active Substance: LAMOTRIGINE
     Indication: EPILEPSY
     Dosage: 25 MG, QD
     Route: 048
     Dates: start: 20170324, end: 20170411

REACTIONS (3)
  - Rash generalised [Recovered/Resolved]
  - Generalised erythema [Recovered/Resolved]
  - Erythema multiforme [Recovered/Resolved]

NARRATIVE: CASE EVENT DATE: 20170423
